FAERS Safety Report 4958337-3 (Version None)
Quarter: 2006Q1

REPORT INFORMATION
  Report Type: 
  Country: None (occurrence: None)
  Receive Date: 20060329
  Receipt Date: 20060329
  Transmission Date: 20060701
  Serious: No
  Sender: FDA-Public Use
  Company Number: None

PATIENT
  Age: 37 Year
  Sex: Female
  Weight: 55.3388 kg

DRUGS (1)
  1. ORTHO TRI-CYCLEN LO [Suspect]
     Indication: ACNE
     Dosage: ONE PILL DAILY PO
     Route: 048
     Dates: start: 20050729, end: 20050826

REACTIONS (9)
  - BLOOD TESTOSTERONE DECREASED [None]
  - CRYING [None]
  - DEPRESSION [None]
  - ENDOCRINE DISORDER [None]
  - FEELING ABNORMAL [None]
  - FEELING OF DESPAIR [None]
  - FEELINGS OF WORTHLESSNESS [None]
  - LOSS OF LIBIDO [None]
  - SEX HORMONE BINDING GLOBULIN INCREASED [None]
